FAERS Safety Report 11491820 (Version 1)
Quarter: 2015Q3

REPORT INFORMATION
  Report Type: Spontaneous
  Country: US (occurrence: None)
  Receive Date: 20150909
  Receipt Date: 20150909
  Transmission Date: 20151125
  Serious: No
  Sender: FDA-Public Use
  Company Number: None

PATIENT
  Age: 52 Year
  Sex: Female

DRUGS (7)
  1. ARMOUR THYROID [Concomitant]
     Active Substance: THYROID, PORCINE\THYROID, UNSPECIFIED
  2. SIMVASTATIN. [Suspect]
     Active Substance: SIMVASTATIN
     Indication: BLOOD CHOLESTEROL INCREASED
     Route: 048
     Dates: start: 20141015, end: 20150903
  3. LISINOPRIL. [Concomitant]
     Active Substance: LISINOPRIL
  4. MULTI VITAMIN [Concomitant]
     Active Substance: VITAMINS
  5. BABY ASPIRIN [Concomitant]
     Active Substance: ASPIRIN
  6. D3 [Concomitant]
     Active Substance: 25-HYDROXYCHOLECALCIFEROL, 5-TRANS-
  7. COQ10 [Concomitant]
     Active Substance: UBIDECARENONE

REACTIONS (6)
  - Arthropathy [None]
  - Vision blurred [None]
  - Headache [None]
  - Nasal congestion [None]
  - Myalgia [None]
  - Ocular hyperaemia [None]

NARRATIVE: CASE EVENT DATE: 20150901
